FAERS Safety Report 9440066 (Version 1)
Quarter: 2013Q3

REPORT INFORMATION
  Report Type: Spontaneous
  Country: JP (occurrence: JP)
  Receive Date: 20130805
  Receipt Date: 20130805
  Transmission Date: 20140515
  Serious: Yes (Hospitalization, Other)
  Sender: FDA-Public Use
  Company Number: JP-ASTELLAS-2013JP008037

PATIENT
  Age: 60 Year
  Sex: Male

DRUGS (2)
  1. GRACEPTOR [Suspect]
     Indication: PROPHYLAXIS AGAINST GRAFT VERSUS HOST DISEASE
     Dosage: 1 MG, TID
     Route: 048
     Dates: start: 201307
  2. PROGRAF [Concomitant]
     Indication: PROPHYLAXIS AGAINST GRAFT VERSUS HOST DISEASE
     Dosage: 4 MG, UNKNOWN/D
     Route: 065
     Dates: end: 201307

REACTIONS (7)
  - Drug dispensing error [Unknown]
  - Drug ineffective [Unknown]
  - Graft versus host disease [Unknown]
  - Dehydration [Unknown]
  - Renal impairment [Unknown]
  - Nausea [Unknown]
  - Diarrhoea [Unknown]
